FAERS Safety Report 17650699 (Version 1)
Quarter: 2020Q2

REPORT INFORMATION
  Report Type: Spontaneous
  Country: US (occurrence: US)
  Receive Date: 20200409
  Receipt Date: 20200409
  Transmission Date: 20200713
  Serious: No
  Sender: FDA-Public Use
  Company Number: US-BAUSCH-BL-2020-008350

PATIENT
  Age: 50 Year
  Sex: Female

DRUGS (1)
  1. BEPREVE [Suspect]
     Active Substance: BEPOTASTINE BESILATE
     Indication: EYE ALLERGY
     Dosage: 1 DROP IN BOTH EYES; STARTED THE DROPS ON THE EVENING AND DISCONTINUE THE USE ON THE EVENING
     Route: 047
     Dates: start: 20200315, end: 20200315

REACTIONS (1)
  - Dysgeusia [Recovered/Resolved]

NARRATIVE: CASE EVENT DATE: 20200315
